FAERS Safety Report 4608087-8 (Version None)
Quarter: 2005Q1

REPORT INFORMATION
  Report Type: 
  Country: None (occurrence: None)
  Receive Date: 20050303
  Receipt Date: 20050114
  Transmission Date: 20050727
  Serious: No
  Sender: FDA-Public Use
  Company Number: 2005BI001063

PATIENT
  Age: 71 Year
  Sex: Male
  Weight: 63.5036 kg

DRUGS (2)
  1. AMEVIVE [Suspect]
     Indication: PSORIASIS
     Dosage: 15 MG; QW;IM
     Route: 030
     Dates: start: 20031013
  2. AMEVIVE [Suspect]
     Indication: PSORIASIS
     Dosage: 15 MG;QW;IM
     Route: 030
     Dates: start: 20040409

REACTIONS (1)
  - CD4 LYMPHOCYTES DECREASED [None]
